FAERS Safety Report 7770744-2 (Version None)
Quarter: 2011Q3

REPORT INFORMATION
  Report Type: 
  Country: None (occurrence: None)
  Receive Date: 20110922
  Receipt Date: 20100805
  Transmission Date: 20111222
  Serious: No
  Sender: FDA-Public Use
  Company Number: US-ASTRAZENECA-2010SE36908

PATIENT
  Age: 21643 Day
  Sex: Male
  Weight: 102.1 kg

DRUGS (3)
  1. KLONOPIN [Concomitant]
     Route: 048
  2. SEROQUEL [Suspect]
     Indication: SCHIZOPHRENIA, PARANOID TYPE
     Route: 048
     Dates: start: 20070201
  3. KLONOPIN [Concomitant]
     Route: 048

REACTIONS (4)
  - PARANOIA [None]
  - NERVOUSNESS [None]
  - DRUG DOSE OMISSION [None]
  - HEADACHE [None]
